FAERS Safety Report 4661053-9 (Version None)
Quarter: 2005Q2

REPORT INFORMATION
  Report Type: 
  Country: None (occurrence: None)
  Receive Date: 20050511
  Receipt Date: 20050428
  Transmission Date: 20051028
  Serious: Yes (Hospitalization, Other)
  Sender: FDA-Public Use
  Company Number: 2005067549

PATIENT
  Sex: Male
  Weight: 63.5036 kg

DRUGS (6)
  1. XANAX [Suspect]
     Indication: MENTAL DISORDER
     Dosage: 1.5 MG (0.5 MG, 3 IN 1 D), ORAL
     Route: 048
     Dates: start: 19920101
  2. NEURONTIN [Suspect]
     Indication: ANXIETY DISORDER
     Dosage: 3 IN 1 D, ORAL
     Route: 048
  3. NEURONTIN [Suspect]
     Indication: MENTAL DISORDER
     Dosage: 3 IN 1 D, ORAL
     Route: 048
  4. GEODON [Suspect]
     Indication: MOOD SWINGS
     Dosage: ORAL
     Route: 048
     Dates: start: 20050101
  5. OBETROL [Concomitant]
  6. FLUOXETINE HCL [Concomitant]

REACTIONS (11)
  - ANGER [None]
  - ANXIETY DISORDER [None]
  - APHAGIA [None]
  - DRUG DEPENDENCE [None]
  - DRUG INEFFECTIVE [None]
  - DRUG WITHDRAWAL SYNDROME [None]
  - EMOTIONAL DISTRESS [None]
  - INTENTIONAL MISUSE [None]
  - OVERDOSE [None]
  - PHOBIA [None]
  - UNEVALUABLE EVENT [None]
